FAERS Safety Report 4673151-4 (Version None)
Quarter: 2005Q2

REPORT INFORMATION
  Report Type: 
  Country: None (occurrence: None)
  Receive Date: 20050525
  Receipt Date: 20050519
  Transmission Date: 20051028
  Serious: Yes (Death)
  Sender: FDA-Public Use
  Company Number: PHBS2005JP07192

PATIENT
  Age: 54 Year
  Sex: Male

DRUGS (4)
  1. ALLOPURINOL [Concomitant]
  2. SULFAMETHOXAZOLE AND TRIMETHOPRIM [Concomitant]
  3. CYCLOSPORINE [Suspect]
     Indication: STEM CELL TRANSPLANT
     Dosage: UNK, UNK
     Route: 065
     Dates: start: 20021201
  4. TRANSFUSIONS [Concomitant]
     Indication: PANCYTOPENIA

REACTIONS (11)
  - ALANINE AMINOTRANSFERASE INCREASED [None]
  - ASCITES [None]
  - BLOOD ALKALINE PHOSPHATASE INCREASED [None]
  - BLOOD BILIRUBIN INCREASED [None]
  - BLOOD CHOLINESTERASE DECREASED [None]
  - HAEMOSIDEROSIS [None]
  - HEPATIC ATROPHY [None]
  - HEPATIC FAILURE [None]
  - HEPATIC FUNCTION ABNORMAL [None]
  - INFECTION [None]
  - PROTHROMBIN TIME PROLONGED [None]
